FAERS Safety Report 9117988 (Version 2)
Quarter: 2013Q2

REPORT INFORMATION
  Report Type: Spontaneous
  Country: US (occurrence: US)
  Receive Date: 20130128
  Receipt Date: 20130424
  Transmission Date: 20140414
  Serious: Yes (Other)
  Sender: FDA-Public Use
  Company Number: US-ASTRAZENECA-2013SE04245

PATIENT
  Age: 64 Year
  Sex: Male
  Weight: 152.4 kg

DRUGS (7)
  1. ATACAND [Suspect]
     Dosage: DAILY
     Route: 048
  2. NEXIUM [Suspect]
     Indication: GASTROOESOPHAGEAL REFLUX DISEASE
     Dosage: DAILY
     Route: 048
  3. POTASSIUM [Concomitant]
     Dosage: DAILY
  4. LASIX [Concomitant]
     Indication: FLUID RETENTION
  5. LOVAZA [Concomitant]
     Dosage: DAILY
  6. WELLBUTRIN [Concomitant]
     Indication: NERVOUS SYSTEM DISORDER
  7. ASPIRIN [Concomitant]
     Indication: CARDIAC DISORDER

REACTIONS (7)
  - Hepatic cancer [Not Recovered/Not Resolved]
  - Localised infection [Unknown]
  - Hepatitis [Unknown]
  - Weight decreased [Not Recovered/Not Resolved]
  - Diabetic foot [Unknown]
  - Adverse event [Unknown]
  - Dizziness [Unknown]
